FAERS Safety Report 25097291 (Version 1)
Quarter: 2025Q1

REPORT INFORMATION
  Report Type: Report from Study
  Country: US (occurrence: US)
  Receive Date: 20250320
  Receipt Date: 20250320
  Transmission Date: 20250409
  Serious: Yes (Hospitalization, Other)
  Sender: ABBVIE
  Company Number: US-ABBVIE-6177496

PATIENT
  Age: 63 Year
  Sex: Male

DRUGS (1)
  1. HUMIRA [Suspect]
     Active Substance: ADALIMUMAB
     Indication: Uveitis
     Route: 058

REACTIONS (9)
  - Anaesthetic complication [Recovering/Resolving]
  - Coronary artery disease [Recovering/Resolving]
  - Gastric haemorrhage [Unknown]
  - Feeding disorder [Unknown]
  - Vomiting [Unknown]
  - Anaemia [Unknown]
  - Scar [Unknown]
  - Procedural complication [Unknown]
  - Weight decreased [Unknown]

NARRATIVE: CASE EVENT DATE: 20250201
